FAERS Safety Report 8539457-3 (Version None)
Quarter: 2012Q3

REPORT INFORMATION
  Report Type: 
  Country: None (occurrence: None)
  Receive Date: 20120726
  Receipt Date: 20120713
  Transmission Date: 20120928
  Serious: Yes (Death, Hospitalization, Disabling)
  Sender: FDA-Public Use
  Company Number: US-CELGENE-163-21880-12070179

PATIENT
  Sex: Female

DRUGS (9)
  1. NEXIUM [Concomitant]
     Route: 065
  2. ERGOCALCIFEROL + ASCORBIC ACID + FOLIC ACID + THIAMINE HYDROCHLORIDE + [Concomitant]
     Route: 065
  3. FISH OIL [Concomitant]
     Route: 065
  4. ICAPS [Concomitant]
     Route: 065
  5. CITALOPRAM HYDROBROMIDE [Concomitant]
     Route: 065
  6. MILK OF MAGNESIA TAB [Concomitant]
     Route: 065
  7. REVLIMID [Suspect]
     Dosage: 10 MILLIGRAM
     Route: 048
     Dates: start: 20120615
  8. TYLENOL [Concomitant]
     Route: 065
  9. EVISTA [Concomitant]
     Route: 065

REACTIONS (5)
  - ASTHENIA [None]
  - URINARY TRACT INFECTION [None]
  - DEATH [None]
  - DYSARTHRIA [None]
  - BLOOD SODIUM INCREASED [None]
